FAERS Safety Report 21087642 (Version 1)
Quarter: 2022Q3

REPORT INFORMATION
  Report Type: Spontaneous
  Country: US (occurrence: None)
  Receive Date: 20220714
  Receipt Date: 20220714
  Transmission Date: 20221027
  Serious: Yes (Disabling)
  Sender: FDA-Public Use
  Company Number: None

PATIENT
  Age: 43 Year
  Sex: Female
  Weight: 67.5 kg

DRUGS (14)
  1. PROLIA [Suspect]
     Active Substance: DENOSUMAB
     Indication: Osteopenia
     Route: 030
  2. CELEBREX [Concomitant]
     Active Substance: CELECOXIB
  3. zafirkilast [Concomitant]
  4. GABAPENTIN [Concomitant]
     Active Substance: GABAPENTIN
  5. LEXAPRO [Concomitant]
     Active Substance: ESCITALOPRAM OXALATE
  6. XANAX [Concomitant]
     Active Substance: ALPRAZOLAM
  7. TAMOXIFEN [Concomitant]
     Active Substance: TAMOXIFEN
  8. ZYRTEC [Concomitant]
     Active Substance: CETIRIZINE HYDROCHLORIDE
  9. FAMOTIDINE [Concomitant]
     Active Substance: FAMOTIDINE
  10. VITAMIN D [Concomitant]
     Active Substance: VITAMIN D NOS
  11. FOLIC ACID [Concomitant]
     Active Substance: FOLIC ACID
  12. FLEXERIL [Concomitant]
     Active Substance: CYCLOBENZAPRINE HYDROCHLORIDE
  13. VITAMINS [Concomitant]
     Active Substance: VITAMINS
  14. TYLENOL [Concomitant]
     Active Substance: ACETAMINOPHEN

REACTIONS (6)
  - Wound [None]
  - Wound secretion [None]
  - Scar [None]
  - Back pain [None]
  - Herpes zoster [None]
  - Impaired healing [None]

NARRATIVE: CASE EVENT DATE: 20210701
